FAERS Safety Report 9114853 (Version 1)
Quarter: 2013Q1

REPORT INFORMATION
  Report Type: Spontaneous
  Country: US (occurrence: None)
  Receive Date: 20130128
  Receipt Date: 20130128
  Transmission Date: 20140127
  Serious: Yes (Death, Hospitalization)
  Sender: FDA-Public Use
  Company Number: UTC-028292

PATIENT
  Age: 57 Year
  Sex: Female
  Weight: 55.45 kg

DRUGS (2)
  1. REMODULIN [Suspect]
     Indication: CARDIAC FAILURE CONGESTIVE
     Dosage: .061 TO .064 UG/KG (1 IN 1 MIN), SUBCUTANEOUS
     Route: 058
     Dates: start: 20120613
  2. COUMADIN (WARFARIN SODIUM) [Concomitant]

REACTIONS (1)
  - Death [None]
